FAERS Safety Report 9842060 (Version 2)
Quarter: 2014Q1

REPORT INFORMATION
  Report Type: Spontaneous
  Country: US (occurrence: US)
  Receive Date: 20140124
  Receipt Date: 20140124
  Transmission Date: 20141002
  Serious: No
  Sender: FDA-Public Use
  Company Number: US-BAXTER-2012BAX017794

PATIENT
  Sex: 0

DRUGS (2)
  1. 0.45% SODIUM CHLORIDE INJECTION IN PLASTIC CONTAINER (PL 146?) [Suspect]
     Indication: PRODUCT USED FOR UNKNOWN INDICATION
     Route: 042
  2. HEPARIN [Suspect]
     Indication: PRODUCT USED FOR UNKNOWN INDICATION
     Dosage: 0.5-1.0 ML/HR
     Route: 042

REACTIONS (2)
  - Thrombosis in device [Unknown]
  - Blood glucose decreased [Unknown]
